FAERS Safety Report 24250778 (Version 1)
Quarter: 2024Q3

REPORT INFORMATION
  Report Type: Spontaneous
  Country: US (occurrence: US)
  Receive Date: 20240826
  Receipt Date: 20240826
  Transmission Date: 20241017
  Serious: No
  Sender: MEDEXUS PHARMA
  Company Number: US-MEDEXUS PHARMA, INC.-2024MED00110

PATIENT
  Sex: Male

DRUGS (2)
  1. RASUVO [Suspect]
     Active Substance: METHOTREXATE SODIUM
     Indication: Rheumatoid arthritis
     Dosage: 25 MG, 1X/WEEK ON FRIDAYS
     Dates: end: 2024
  2. ORENCIA [Concomitant]
     Active Substance: ABATACEPT

REACTIONS (5)
  - Pain in extremity [Not Recovered/Not Resolved]
  - Peripheral swelling [Not Recovered/Not Resolved]
  - Arthralgia [Not Recovered/Not Resolved]
  - Product dose omission issue [Not Recovered/Not Resolved]
  - Product prescribing error [Not Recovered/Not Resolved]

NARRATIVE: CASE EVENT DATE: 20240101
